FAERS Safety Report 17244051 (Version 1)
Quarter: 2020Q1

REPORT INFORMATION
  Report Type: Spontaneous
  Country: ES (occurrence: ES)
  Receive Date: 20200107
  Receipt Date: 20200107
  Transmission Date: 20200409
  Serious: Yes (Other)
  Sender: FDA-Public Use
  Company Number: ES-B.I. PHARMACEUTICALS,INC./RIDGEFIELD-2020-12-000838

PATIENT
  Age: 76 Year
  Sex: Male

DRUGS (2)
  1. ENALAPRIL + HIDROCLOROTIAZIDA [Concomitant]
     Active Substance: ENALAPRIL MALEATE\HYDROCHLOROTHIAZIDE
     Indication: HYPERTENSION
     Route: 048
     Dates: start: 20160606, end: 20191111
  2. JARDIANCE [Suspect]
     Active Substance: EMPAGLIFLOZIN
     Indication: DIABETES MELLITUS
     Dosage: 10/24H
     Route: 048
     Dates: start: 20170601

REACTIONS (2)
  - Hyperkalaemia [Recovering/Resolving]
  - Chronic kidney disease [Recovering/Resolving]

NARRATIVE: CASE EVENT DATE: 20191010
